FAERS Safety Report 20738473 (Version 3)
Quarter: 2022Q3

REPORT INFORMATION
  Report Type: Spontaneous
  Country: FR (occurrence: FR)
  Receive Date: 20220422
  Receipt Date: 20220709
  Transmission Date: 20221026
  Serious: Yes (Life-Threatening)
  Sender: FDA-Public Use
  Company Number: None

PATIENT
  Age: 59 Year
  Sex: Male

DRUGS (10)
  1. LANSOPRAZOLE [Suspect]
     Active Substance: LANSOPRAZOLE
     Indication: Abdominal pain upper
     Dosage: UNIT DOSE 30MG,FREQUENCY TIME 1 DAYS,DURATION 3 MONTHS
     Route: 048
     Dates: start: 202112, end: 20220305
  2. OXALIPLATIN [Suspect]
     Active Substance: OXALIPLATIN
     Indication: Adenocarcinoma gastric
     Dosage: UNIT DOSE 220MG,FREQUENCY TIME 1 CYCLICAL,DURATION 52 DAYS
     Route: 041
     Dates: start: 20211209, end: 20220216
  3. CAPECITABINE [Suspect]
     Active Substance: CAPECITABINE
     Indication: Adenocarcinoma gastric
     Dosage: UNIT DOSE 54.6G,FREQUENCY TIME 1 MONTHS,DURATION 55 DAYS
     Route: 048
     Dates: start: 20220106, end: 20220302
  4. PREDNISONE [Suspect]
     Active Substance: PREDNISONE
     Indication: Product used for unknown indication
     Dosage: UNIT DOSE 50MG,FREQUENCY TIME 1 DAYS
     Route: 048
     Dates: start: 202201
  5. CHLORPROMAZINE [Suspect]
     Active Substance: CHLORPROMAZINE
     Indication: Hiccups
     Dosage: LARGACTIL 4 PER CENT, ORAL SOLUTION IN DROPS,UNIT DOSE 25GTT,FREQUENCY TIME 1 DAYS,DURATION 3 MONTHS
     Route: 048
     Dates: start: 202112, end: 20220305
  6. TRASTUZUMAB [Suspect]
     Active Substance: TRASTUZUMAB
     Indication: Adenocarcinoma gastric
     Dosage: TRASTUZUMAB ((MAMMALS / HAMSTER / CHO CELLS)),UNIT DOSE 450MG,FREQUENCY TIME 1 CYCLICAL,DURATION 52
     Route: 041
     Dates: start: 20220105, end: 20220216
  7. OXAZEPAM [Concomitant]
     Active Substance: OXAZEPAM
     Indication: Product used for unknown indication
     Dosage: SERESTA 10 MG, TABLET,UNIT DOSE 20MG,FREQUENCY TIME 1 DAYS,DURATION 2 MONTHS
     Route: 048
     Dates: start: 202201, end: 20220305
  8. FOLIC ACID [Concomitant]
     Active Substance: FOLIC ACID
     Indication: Product used for unknown indication
     Dosage: UNIT DOSE 5MG,FREQUENCY TIME 1 DAYS,THERAPY START DATE AND END DATE : ASKU
     Route: 048
  9. CALCIUM PHOSPHATE, DIBASIC, ANHYDROUS\MAGNESIUM GLYCEROPHOSPHATE\PHOSP [Concomitant]
     Active Substance: CALCIUM PHOSPHATE, DIBASIC, ANHYDROUS\MAGNESIUM GLYCEROPHOSPHATE\PHOSPHORIC ACID\SODIUM PHOSPHATE, D
     Indication: Product used for unknown indication
     Dosage: PHOSPHONEUROS, ORAL SOLUTION IN DROPS,UNIT DOSE 150GTT,FREQUENCY TIME 1DAYS,DURATION 2 MONTHS
     Route: 048
     Dates: start: 202201, end: 20220305
  10. KARDEGIC [Concomitant]
     Active Substance: ASPIRIN DL-LYSINE
     Indication: Product used for unknown indication
     Dosage: KARDEGIC 75 MG, POWDER FOR ORAL SOLUTION IN SACHET-DOSE, UNIT DOSE 75MG,FREQUENCY TIME 1 DAYS
     Dates: start: 202012

REACTIONS (1)
  - Status epilepticus [Recovered/Resolved]

NARRATIVE: CASE EVENT DATE: 20220305
